FAERS Safety Report 6679467-4 (Version None)
Quarter: 2010Q2

REPORT INFORMATION
  Report Type: 
  Country: None (occurrence: None)
  Receive Date: 20100413
  Receipt Date: 20100329
  Transmission Date: 20101027
  Serious: Yes (Other)
  Sender: FDA-Public Use
  Company Number: PHEH2010US03403

PATIENT

DRUGS (1)
  1. AREDIA [Suspect]
     Dosage: 90MG QMONTH IN 500CC OVER 1.5 TO 2 HOURS
     Dates: start: 20001003, end: 20020219

REACTIONS (6)
  - DIVERTICULUM [None]
  - INCONTINENCE [None]
  - INTERVERTEBRAL DISC DEGENERATION [None]
  - LUMBAR RADICULOPATHY [None]
  - OSTEOPOROSIS [None]
  - SPINAL LAMINECTOMY [None]
